FAERS Safety Report 26106090 (Version 1)
Quarter: 2025Q4

REPORT INFORMATION
  Report Type: Spontaneous
  Country: US (occurrence: US)
  Receive Date: 20251201
  Receipt Date: 20251201
  Transmission Date: 20260119
  Serious: No
  Sender: KYOWA
  Company Number: US-KYOWAKIRIN-2025KK022567

PATIENT

DRUGS (1)
  1. CRYSVITA [Suspect]
     Active Substance: BUROSUMAB-TWZA
     Indication: Hypophosphataemic osteomalacia
     Dosage: UNK
     Route: 065

REACTIONS (1)
  - Fibroblast growth factor 23 increased [Unknown]
